FAERS Safety Report 12614685 (Version 4)
Quarter: 2019Q2

REPORT INFORMATION
  Report Type: Spontaneous
  Country: US (occurrence: US)
  Receive Date: 20160802
  Receipt Date: 20190408
  Transmission Date: 20190711
  Serious: Yes (Hospitalization)
  Sender: FDA-Public Use
  Company Number: US-JAZZ-2016-US-002876

PATIENT
  Sex: Male

DRUGS (9)
  1. HYDROCHLOROTHIAZIDE. [Suspect]
     Active Substance: HYDROCHLOROTHIAZIDE
     Indication: PRODUCT USED FOR UNKNOWN INDICATION
     Dosage: UNKNOWN
  2. LISINOPRIL. [Suspect]
     Active Substance: LISINOPRIL
     Indication: PRODUCT USED FOR UNKNOWN INDICATION
     Dosage: UNKNOWN
  3. XYREM [Suspect]
     Active Substance: SODIUM OXYBATE
     Dosage: 4.5 G, BID
     Route: 048
     Dates: start: 201510
  4. XYREM [Suspect]
     Active Substance: SODIUM OXYBATE
     Indication: NARCOLEPSY
     Dosage: 2.25 G, BID
     Route: 048
     Dates: start: 201510, end: 201510
  5. KLONOPIN [Concomitant]
     Active Substance: CLONAZEPAM
     Indication: PRODUCT USED FOR UNKNOWN INDICATION
     Dosage: UNK
     Dates: start: 20150101, end: 20151006
  6. NUVIGIL [Concomitant]
     Active Substance: ARMODAFINIL
     Indication: PRODUCT USED FOR UNKNOWN INDICATION
     Dosage: UNK
     Dates: start: 20151005
  7. CYMBALTA [Concomitant]
     Active Substance: DULOXETINE HYDROCHLORIDE
     Indication: PRODUCT USED FOR UNKNOWN INDICATION
     Dosage: UNK
     Dates: start: 20151005
  8. XYREM [Suspect]
     Active Substance: SODIUM OXYBATE
     Indication: CATAPLEXY
     Dosage: DOSE ADJUSTMENTS
     Route: 048
     Dates: start: 201510, end: 201510
  9. METHYLPHENIDATE. [Concomitant]
     Active Substance: METHYLPHENIDATE
     Indication: PRODUCT USED FOR UNKNOWN INDICATION
     Dosage: UNK
     Dates: start: 20151005, end: 20160215

REACTIONS (7)
  - Dehydration [Unknown]
  - Cough [Unknown]
  - Blood pressure increased [Recovering/Resolving]
  - Blood pressure fluctuation [Recovering/Resolving]
  - Heart rate increased [Unknown]
  - Blood glucose increased [Unknown]
  - Dizziness [Unknown]
